FAERS Safety Report 21765067 (Version 1)
Quarter: 2022Q4

REPORT INFORMATION
  Report Type: Spontaneous
  Country: US (occurrence: US)
  Receive Date: 20221222
  Receipt Date: 20221222
  Transmission Date: 20230113
  Serious: No
  Sender: FDA-Public Use
  Company Number: US-ABBVIE-4245961

PATIENT

DRUGS (1)
  1. CREON [Suspect]
     Active Substance: PANCRELIPASE AMYLASE\PANCRELIPASE LIPASE\PANCRELIPASE PROTEASE
     Indication: Product used for unknown indication
     Route: 048

REACTIONS (7)
  - Gastrointestinal bacterial overgrowth [Unknown]
  - Pancreatic atrophy [Unknown]
  - Back pain [Unknown]
  - Drug ineffective [Unknown]
  - Diarrhoea [Unknown]
  - Steatorrhoea [Unknown]
  - Abdominal pain [Unknown]
